FAERS Safety Report 24312825 (Version 3)
Quarter: 2025Q1

REPORT INFORMATION
  Report Type: Report from Study
  Country: DE (occurrence: DE)
  Receive Date: 20240912
  Receipt Date: 20250128
  Transmission Date: 20250408
  Serious: Yes (Hospitalization)
  Sender: JOHNSON AND JOHNSON
  Company Number: DE-JNJFOC-20240914313

PATIENT
  Age: 42 Year
  Sex: Female
  Weight: 78 kg

DRUGS (1)
  1. SPRAVATO [Suspect]
     Active Substance: ESKETAMINE
     Indication: Depression
     Route: 045

REACTIONS (1)
  - Psychological trauma [Recovered/Resolved]

NARRATIVE: CASE EVENT DATE: 20240903
